FAERS Safety Report 18119471 (Version 1)
Quarter: 2020Q3

REPORT INFORMATION
  Report Type: Other
  Country: MX (occurrence: MX)
  Receive Date: 20200806
  Receipt Date: 20200806
  Transmission Date: 20201103
  Serious: Yes (Disabling, Other)
  Sender: FDA-Public Use
  Company Number: MX-ROCHE-2653334

PATIENT
  Age: 38 Year
  Sex: Female

DRUGS (14)
  1. DEXAMETHASONE. [Concomitant]
     Active Substance: DEXAMETHASONE
     Indication: PREMEDICATION
     Dates: end: 201911
  2. DIPHENHYDRAMINE. [Concomitant]
     Active Substance: DIPHENHYDRAMINE
     Indication: PREMEDICATION
     Dates: end: 201911
  3. PREGABALIN. [Concomitant]
     Active Substance: PREGABALIN
     Indication: MUSCLE RELAXANT THERAPY
  4. CYCLOPHOSPHAMIDE. [Concomitant]
     Active Substance: CYCLOPHOSPHAMIDE
     Indication: NON-HODGKIN^S LYMPHOMA
     Dosage: DOSE, FREQUENCY AND ROUTE OF ADMINISTRATION WERE NOT REPORTED
     Route: 042
     Dates: end: 201911
  5. ONDANSETRON [Concomitant]
     Active Substance: ONDANSETRON
     Indication: PREMEDICATION
     Dates: end: 201911
  6. LEVETIRACETAM. [Concomitant]
     Active Substance: LEVETIRACETAM
     Indication: MUSCLE CONTRACTURE
  7. VINCRISTINE [Concomitant]
     Active Substance: VINCRISTINE
     Indication: NON-HODGKIN^S LYMPHOMA
     Route: 042
     Dates: end: 201911
  8. DOXORUBICIN [Concomitant]
     Active Substance: DOXORUBICIN
     Indication: NON-HODGKIN^S LYMPHOMA
     Route: 042
     Dates: end: 201911
  9. FILGRASTIM [Concomitant]
     Active Substance: FILGRASTIM
  10. CELECOXIB. [Concomitant]
     Active Substance: CELECOXIB
     Indication: MUSCLE RELAXANT THERAPY
  11. DEXRAZOXANE. [Concomitant]
     Active Substance: DEXRAZOXANE
     Indication: NON-HODGKIN^S LYMPHOMA
     Route: 042
     Dates: end: 201911
  12. RANITIDINE. [Concomitant]
     Active Substance: RANITIDINE
     Indication: PREMEDICATION
     Dates: end: 201911
  13. METOCLOPRAMIDE. [Concomitant]
     Active Substance: METOCLOPRAMIDE
     Indication: PREMEDICATION
     Dates: end: 201911
  14. RITUXIMAB. [Suspect]
     Active Substance: RITUXIMAB
     Indication: B-CELL LYMPHOMA
     Dosage: DOSE WAS NOT REPORTED
     Route: 042
     Dates: end: 201911

REACTIONS (22)
  - Vomiting [Recovered/Resolved]
  - Fatigue [Recovered/Resolved]
  - Sleep disorder [Unknown]
  - Gait disturbance [Recovered/Resolved]
  - Neurogenic bladder [Recovered/Resolved]
  - Muscle contracture [Unknown]
  - Pyrexia [Recovered/Resolved]
  - Alopecia [Unknown]
  - Skin discolouration [Recovered/Resolved]
  - Anxiety [Recovered/Resolved]
  - Gastrointestinal disorder [Unknown]
  - Cholelithiasis [Unknown]
  - Dehydration [Recovered/Resolved]
  - Claustrophobia [Unknown]
  - Lip discolouration [Recovered/Resolved]
  - Weight increased [Unknown]
  - Dyspnoea [Recovered/Resolved]
  - Tremor [Recovered/Resolved]
  - Chills [Recovered/Resolved]
  - Hypersensitivity [Recovered/Resolved]
  - Diabetes mellitus [Recovered/Resolved]
  - Neuropathy peripheral [Unknown]
